FAERS Safety Report 10543531 (Version 3)
Quarter: 2015Q1

REPORT INFORMATION
  Report Type: Spontaneous
  Country: GB (occurrence: GB)
  Receive Date: 20141027
  Receipt Date: 20150123
  Transmission Date: 20150720
  Serious: Yes (Other)
  Sender: FDA-Public Use
  Company Number: GB-WATSON-2014-22561

PATIENT
  Age: 21 Year
  Sex: Male
  Weight: 111 kg

DRUGS (1)
  1. DOXYCYCLINE HYCLATE. [Suspect]
     Active Substance: DOXYCYCLINE HYCLATE
     Indication: ACNE
     Dosage: 100 MG, DAILY
     Route: 048
     Dates: start: 201403, end: 20140924

REACTIONS (3)
  - Headache [Unknown]
  - Intracranial pressure increased [Not Recovered/Not Resolved]
  - Papilloedema [Not Recovered/Not Resolved]

NARRATIVE: CASE EVENT DATE: 20140924
